FAERS Safety Report 9453788 (Version 1)
Quarter: 2013Q1

REPORT INFORMATION
  Report Type: Not Available
  Country: US (occurrence: US)
  Receive Date: 20120321
  Receipt Date: 20120321
  Transmission Date: 20140127
  Serious: Yes (Hospitalization, Other)
  Sender: FDA-Public Use
  Company Number: US-LUNDBECK-DKLU1076468

PATIENT
  Age: 37 None
  Sex: Female

DRUGS (11)
  1. SABRIL     (TABLET) [Suspect]
     Indication: EPILEPSY
     Route: 048
     Dates: start: 20111101, end: 201203
  2. SABRIL     (TABLET) [Suspect]
     Indication: COMPLEX PARTIAL SEIZURES
     Route: 048
     Dates: start: 20111101, end: 201203
  3. FELBATOL [Concomitant]
     Indication: CONVULSION
  4. FELBATOL [Concomitant]
  5. FELBATOL [Concomitant]
  6. TEGRETOL XL [Concomitant]
     Indication: CONVULSION
  7. LYRICA [Concomitant]
     Indication: CONVULSION
  8. ZONEGRAN [Concomitant]
     Indication: CONVULSION
  9. KEPPRA [Concomitant]
     Indication: CONVULSION
  10. KEPPRA [Concomitant]
  11. SINGULAIR [Concomitant]
     Indication: SINUSITIS

REACTIONS (2)
  - Convulsion [Recovered/Resolved]
  - Vomiting [Recovered/Resolved]
